FAERS Safety Report 8887580 (Version 2)
Quarter: 2013Q2

REPORT INFORMATION
  Report Type: Spontaneous
  Country: US (occurrence: None)
  Receive Date: 20120504
  Receipt Date: 20120507
  Transmission Date: 20140414
  Serious: Yes (Other)
  Sender: FDA-Public Use
  Company Number: PHEH2009US00518

PATIENT
  Age: 27 Month
  Sex: Female

DRUGS (2)
  1. TRILEPTAL [Suspect]
     Indication: CONVULSION
     Dosage: 10ML, 3ML IN AM, 3ML NOON, 4ML EVENING
  2. DIASTAT ^ATHENA^ (DIAZEPAM) [Concomitant]

REACTIONS (3)
  - Convulsion [None]
  - Malaise [None]
  - Liquid product physical issue [None]
